FAERS Safety Report 16571468 (Version 1)
Quarter: 2019Q3

REPORT INFORMATION
  Report Type: Spontaneous
  Country: IT (occurrence: IT)
  Receive Date: 20190715
  Receipt Date: 20190715
  Transmission Date: 20191004
  Serious: Yes (Life-Threatening, Hospitalization, Other)
  Sender: FDA-Public Use
  Company Number: IT-MYLANLABS-2019M1064745

PATIENT
  Age: 39 Year
  Sex: Male

DRUGS (3)
  1. PREDNISONE. [Suspect]
     Active Substance: PREDNISONE
     Indication: PULMONARY TOXICITY
     Dosage: 25 MILLIGRAM, QD
     Route: 065
  2. AMIODARONE [Suspect]
     Active Substance: AMIODARONE
     Indication: VENTRICULAR TACHYCARDIA
     Dosage: UNK
     Route: 065
  3. AMIODARONE [Suspect]
     Active Substance: AMIODARONE
     Indication: ACUTE MYOCARDIAL INFARCTION

REACTIONS (8)
  - Pneumonia [Recovered/Resolved]
  - Varicella zoster pneumonia [Recovered/Resolved]
  - Ejection fraction decreased [Recovered/Resolved]
  - Cardiogenic shock [Recovered/Resolved]
  - Respiratory distress [Recovered/Resolved]
  - Acute kidney injury [Recovered/Resolved]
  - Respiratory acidosis [Recovered/Resolved]
  - Pulmonary toxicity [Recovered/Resolved]

NARRATIVE: CASE EVENT DATE: 201808
